FAERS Safety Report 18170025 (Version 1)
Quarter: 2020Q3

REPORT INFORMATION
  Report Type: Spontaneous
  Country: US (occurrence: US)
  Receive Date: 20200819
  Receipt Date: 20200819
  Transmission Date: 20201103
  Serious: Yes (Hospitalization)
  Sender: FDA-Public Use
  Company Number: US-LUPIN PHARMACEUTICALS INC.-2020-04752

PATIENT
  Age: 64 Year
  Sex: Male

DRUGS (8)
  1. MODAFINIL. [Suspect]
     Active Substance: MODAFINIL
     Indication: BEHAVIOUR DISORDER
     Dosage: UNK
     Route: 065
  2. CLARITHROMYCIN. [Suspect]
     Active Substance: CLARITHROMYCIN
     Indication: BEHAVIOUR DISORDER
     Dosage: UNK
     Route: 065
  3. LAMOTRIGINE. [Suspect]
     Active Substance: LAMOTRIGINE
     Indication: BEHAVIOUR DISORDER
     Dosage: UNK
     Route: 065
  4. OLANZAPINE. [Suspect]
     Active Substance: OLANZAPINE
     Indication: BEHAVIOUR DISORDER
     Dosage: UNK
     Route: 065
  5. GABAPENTIN. [Suspect]
     Active Substance: GABAPENTIN
     Indication: BEHAVIOUR DISORDER
     Dosage: UNK
     Route: 065
  6. IMIPRAMINE [Suspect]
     Active Substance: IMIPRAMINE
     Indication: BEHAVIOUR DISORDER
     Dosage: UNK
     Route: 065
  7. LEVETIRACETAM. [Suspect]
     Active Substance: LEVETIRACETAM
     Indication: BEHAVIOUR DISORDER
     Dosage: UNK
     Route: 065
  8. ZOLPIDEM TARTARATE [Suspect]
     Active Substance: ZOLPIDEM TARTRATE
     Indication: BEHAVIOUR DISORDER
     Dosage: UNK
     Route: 065

REACTIONS (7)
  - Cognitive disorder [Recovering/Resolving]
  - Muscle rigidity [Recovering/Resolving]
  - Delusion [Recovering/Resolving]
  - Memory impairment [Recovering/Resolving]
  - Trismus [Recovering/Resolving]
  - Fall [Recovering/Resolving]
  - Gait disturbance [Recovering/Resolving]
